FAERS Safety Report 5190542-6 (Version None)
Quarter: 2006Q4

REPORT INFORMATION
  Report Type: 
  Country: None (occurrence: None)
  Receive Date: 20061222
  Receipt Date: 20060914
  Transmission Date: 20070319
  Serious: Yes (Hospitalization, Other)
  Sender: FDA-Public Use
  Company Number: US-ELI_LILLY_AND_COMPANY-US200609003559

PATIENT
  Age: 49 Year
  Sex: Male
  Weight: 102.04 kg

DRUGS (1)
  1. ZYPREXA [Suspect]
     Indication: SCHIZOPHRENIA
     Dates: start: 20010101, end: 20020101

REACTIONS (3)
  - DIABETES MELLITUS [None]
  - PANCREATITIS [None]
  - THROMBOSIS [None]
